FAERS Safety Report 6634977-0 (Version None)
Quarter: 2010Q1

REPORT INFORMATION
  Report Type: 
  Country: None (occurrence: None)
  Receive Date: 20100315
  Receipt Date: 20100305
  Transmission Date: 20100710
  Serious: Yes (Other)
  Sender: FDA-Public Use
  Company Number: FR-SANOFI-AVENTIS-2010SA012616

PATIENT
  Sex: Female

DRUGS (1)
  1. LASIX [Suspect]
     Indication: DRUG USE FOR UNKNOWN INDICATION
     Route: 048
     Dates: end: 20100305

REACTIONS (4)
  - DERMATITIS BULLOUS [None]
  - ECZEMA [None]
  - PRURITUS [None]
  - RENAL FAILURE [None]
